FAERS Safety Report 7706523-1 (Version None)
Quarter: 2011Q3

REPORT INFORMATION
  Report Type: 
  Country: None (occurrence: None)
  Receive Date: 20110824
  Receipt Date: 20110816
  Transmission Date: 20111222
  Serious: Yes (Hospitalization)
  Sender: FDA-Public Use
  Company Number: GB-MPIJNJ-2011-01561

PATIENT

DRUGS (5)
  1. VELCADE [Suspect]
     Indication: MANTLE CELL LYMPHOMA
     Dosage: 3 MG, UNK
     Route: 065
     Dates: start: 20110329, end: 20110419
  2. DOXORUBICIN HCL [Suspect]
     Indication: MANTLE CELL LYMPHOMA
     Dosage: 95 MG, UNK
     Route: 065
     Dates: start: 20110329, end: 20110419
  3. CYCLOPHOSPHAMIDE [Suspect]
     Indication: MANTLE CELL LYMPHOMA
     Dosage: 1425 MG, UNK
     Route: 065
     Dates: start: 20110329, end: 20110419
  4. PREDNISONE [Suspect]
     Indication: MANTLE CELL LYMPHOMA
     Dosage: 100 MG, UNK
     Route: 065
     Dates: start: 20110329, end: 20110419
  5. VINCRISTINE [Suspect]
     Indication: MANTLE CELL LYMPHOMA
     Dosage: 2 MG, UNK
     Route: 065
     Dates: start: 20110329, end: 20110419

REACTIONS (3)
  - KERATITIS HERPETIC [None]
  - FEBRILE NEUTROPENIA [None]
  - OESOPHAGEAL CANDIDIASIS [None]
